FAERS Safety Report 15099776 (Version 1)
Quarter: 2018Q3

REPORT INFORMATION
  Report Type: Report from Study
  Country: None (occurrence: US)
  Receive Date: 20180702
  Receipt Date: 20180702
  Transmission Date: 20181010
  Serious: Yes (Other)
  Sender: FDA-Public Use
  Company Number: US-ABBVIE-18K-163-2221056-00

PATIENT
  Sex: Female

DRUGS (2)
  1. HUMIRA [Suspect]
     Active Substance: ADALIMUMAB
     Indication: RHEUMATOID ARTHRITIS
     Route: 058
     Dates: end: 201805
  2. HUMIRA [Suspect]
     Active Substance: ADALIMUMAB
     Route: 058
     Dates: start: 201805

REACTIONS (6)
  - Arthralgia [Unknown]
  - Breast cyst [Unknown]
  - Therapeutic response shortened [Unknown]
  - Stress [Recovering/Resolving]
  - Wrist fracture [Unknown]
  - Bronchitis [Unknown]

NARRATIVE: CASE EVENT DATE: 201712
